FAERS Safety Report 9831246 (Version 1)
Quarter: 2014Q1

REPORT INFORMATION
  Report Type: Spontaneous
  Country: US (occurrence: US)
  Receive Date: 20140121
  Receipt Date: 20140121
  Transmission Date: 20141002
  Serious: Yes (Death, Hospitalization)
  Sender: FDA-Public Use
  Company Number: US-JNJFOC-20140109411

PATIENT
  Age: 54 Year
  Sex: Male

DRUGS (5)
  1. SALICYLATE [Suspect]
     Indication: SUICIDE ATTEMPT
     Route: 065
  2. CYCLOBENZAPRINE [Suspect]
     Indication: SUICIDE ATTEMPT
     Route: 065
  3. METFORMIN [Suspect]
     Indication: SUICIDE ATTEMPT
     Route: 065
  4. ETHANOL [Suspect]
     Indication: SUICIDE ATTEMPT
     Route: 065
  5. NON THERAPEUTIC PRODUCT [Suspect]
     Indication: SUICIDE ATTEMPT
     Route: 065

REACTIONS (1)
  - Toxicity to various agents [Fatal]
